FAERS Safety Report 9617191 (Version 3)
Quarter: 2013Q4

REPORT INFORMATION
  Report Type: Spontaneous
  Country: JP (occurrence: JP)
  Receive Date: 20131011
  Receipt Date: 20131113
  Transmission Date: 20140711
  Serious: Yes (Hospitalization)
  Sender: FDA-Public Use
  Company Number: JP-BAYER-2013-091911

PATIENT
  Age: 57 Year
  Sex: Male
  Weight: 60 kg

DRUGS (8)
  1. STIVARGA [Suspect]
     Indication: COLON CANCER
     Dosage: 160 MG, QD
     Route: 048
     Dates: start: 20130712, end: 20130726
  2. STIVARGA [Suspect]
     Indication: COLON CANCER
     Dosage: 120 MG, QD
     Route: 048
     Dates: start: 20130809, end: 20130816
  3. TRAMAL [Concomitant]
     Dosage: DAILY DOSE 100 MG
     Route: 048
     Dates: start: 20130621
  4. LOXONIN [Concomitant]
     Dosage: DAILY DOSE 180 MG
     Route: 048
     Dates: start: 20130524
  5. NEXIUM [Concomitant]
     Dosage: DAILY DOSE 10 MG
     Route: 048
     Dates: start: 20130419
  6. PYDOXAL [Concomitant]
     Dosage: DAILY DOSE 30 MG
     Route: 048
     Dates: start: 20100507, end: 20131025
  7. HIRUDOID [Concomitant]
     Indication: PALMAR-PLANTAR ERYTHRODYSAESTHESIA SYNDROME
     Dosage: UNK
     Route: 061
     Dates: start: 20130712
  8. LOCOID [Concomitant]
     Indication: PALMAR-PLANTAR ERYTHRODYSAESTHESIA SYNDROME
     Dosage: UNK
     Route: 061
     Dates: start: 20130712

REACTIONS (4)
  - Cholecystitis [Recovering/Resolving]
  - Diarrhoea [Not Recovered/Not Resolved]
  - Aspartate aminotransferase increased [Unknown]
  - Alanine aminotransferase increased [Unknown]
